FAERS Safety Report 10651516 (Version 1)
Quarter: 2014Q4

REPORT INFORMATION
  Report Type: Spontaneous
  Country: FR (occurrence: FR)
  Receive Date: 20141215
  Receipt Date: 20141215
  Transmission Date: 20150529
  Serious: Yes (Other)
  Sender: FDA-Public Use
  Company Number: FR-ASTRAZENECA-2014SE94898

PATIENT
  Sex: Female

DRUGS (2)
  1. TARGOCID [Suspect]
     Active Substance: TEICOPLANIN
     Route: 065
  2. MEROPENEME [Suspect]
     Active Substance: MEROPENEM
     Route: 042

REACTIONS (1)
  - Pancytopenia [Unknown]
